FAERS Safety Report 7190199-9 (Version None)
Quarter: 2010Q4

REPORT INFORMATION
  Report Type: 
  Country: None (occurrence: None)
  Receive Date: 20101223
  Receipt Date: 20101216
  Transmission Date: 20110411
  Serious: Yes (Hospitalization)
  Sender: FDA-Public Use
  Company Number: FR-NOVOPROD-320293

PATIENT
  Age: 76 Year
  Sex: Female

DRUGS (16)
  1. NOVONORM [Suspect]
     Indication: TYPE 2 DIABETES MELLITUS
     Dosage: 2 MG (3 DF/DAY)
     Route: 048
  2. ROCEPHIN [Suspect]
     Indication: BRONCHITIS
     Dosage: 1 G, UNK
     Dates: start: 20100921, end: 20100922
  3. ZYLORIC [Suspect]
     Dosage: 200 MG, 1 DF/DAY
     Route: 048
  4. VOGALENE [Suspect]
     Dosage: 7.5 MG, UNK
     Route: 048
     Dates: start: 20100915
  5. BETASERC                           /00141802/ [Suspect]
     Dosage: 24 MG, 2 DF/DAY
     Route: 048
     Dates: start: 20100915
  6. TANGANIL                           /00129601/ [Suspect]
     Dosage: 500 MG, 3 DF/DAY
     Route: 048
     Dates: start: 20100915
  7. FOZITEC                            /00915301/ [Suspect]
     Dosage: 20 MG, 1DF/DAY
     Route: 048
  8. VASTAREL [Suspect]
     Dosage: 35 MG, 2DF/DAY
     Route: 048
  9. TOPALGIC LP [Suspect]
     Dosage: 150 MG, 2 DF/DAY
     Route: 048
  10. FORLAX                             /00754501/ [Concomitant]
  11. LANTUS [Concomitant]
  12. LEVOTHYROX [Concomitant]
     Dosage: 150 UG, 1DF/DAY
     Route: 048
  13. KARDEGIC [Concomitant]
     Dosage: 75 MG, 1DF/DAY
     Route: 048
  14. ZOLPIDEM [Concomitant]
     Dosage: 10 MG, QD
     Route: 048
  15. PARACETAMOL [Concomitant]
  16. DICLOFENAC [Concomitant]

REACTIONS (1)
  - DRUG RASH WITH EOSINOPHILIA AND SYSTEMIC SYMPTOMS [None]
